FAERS Safety Report 10515782 (Version 1)
Quarter: 2014Q4

REPORT INFORMATION
  Report Type: Spontaneous
  Country: US (occurrence: US)
  Receive Date: 20141014
  Receipt Date: 20141014
  Transmission Date: 20150528
  Serious: No
  Sender: FDA-Public Use
  Company Number: US-ASTRAZENECA-2014SE74527

PATIENT
  Sex: Female

DRUGS (2)
  1. SYMBICORT [Suspect]
     Active Substance: BUDESONIDE\FORMOTEROL FUMARATE DIHYDRATE
     Indication: PULMONARY THROMBOSIS
     Dosage: 160 4.5MCG 2 PUFFS TWO TIMES A DAY
     Route: 055
     Dates: start: 20140805
  2. SYMBICORT [Suspect]
     Active Substance: BUDESONIDE\FORMOTEROL FUMARATE DIHYDRATE
     Indication: PULMONARY INFARCTION
     Dosage: 160 4.5MCG 2 PUFFS TWO TIMES A DAY
     Route: 055
     Dates: start: 20140805

REACTIONS (2)
  - Product use issue [Unknown]
  - Dyspnoea [Unknown]
